FAERS Safety Report 8997245 (Version 3)
Quarter: 2013Q1

REPORT INFORMATION
  Report Type: Spontaneous
  Country: US (occurrence: US)
  Receive Date: 20130104
  Receipt Date: 20130201
  Transmission Date: 20140127
  Serious: Yes (Other)
  Sender: FDA-Public Use
  Company Number: US-PFIZER INC-2013001613

PATIENT
  Age: 44 Year
  Sex: Female

DRUGS (15)
  1. NORVASC [Suspect]
     Dosage: 10 MG, 1X/DAY
     Route: 048
  2. REVATIO [Suspect]
     Dosage: 20 MG, 3X/DAY (ONE PO TID)
     Route: 048
  3. PROGRAF [Concomitant]
     Dosage: UNK
  4. WARFARIN [Concomitant]
     Dosage: UNK
  5. TYLENOL 3 [Concomitant]
     Dosage: UNK
  6. VITAMIN D [Concomitant]
     Dosage: UNK
  7. PENLAC [Concomitant]
     Dosage: UNK
  8. NEXIUM [Concomitant]
     Dosage: UNK
  9. FERROUS SULFATE [Concomitant]
     Dosage: UNK
  10. LASIX [Concomitant]
     Dosage: UNK
  11. APRESOLIN [Concomitant]
     Dosage: UNK
  12. REGLAN [Concomitant]
     Dosage: UNK
  13. CELLCEPT [Concomitant]
     Dosage: UNK
  14. ZOFRAN [Concomitant]
     Dosage: UNK
  15. LYRICA [Concomitant]
     Dosage: UNK

REACTIONS (2)
  - Renal disorder [Unknown]
  - Pancreatic disorder [Unknown]
